FAERS Safety Report 9677695 (Version 3)
Quarter: 2013Q4

REPORT INFORMATION
  Report Type: Spontaneous
  Country: AU (occurrence: AU)
  Receive Date: 20131108
  Receipt Date: 20131219
  Transmission Date: 20140711
  Serious: Yes (Life-Threatening, Other)
  Sender: FDA-Public Use
  Company Number: AU-MERCK-1311AUS002408

PATIENT
  Age: 79 Year
  Sex: Female

DRUGS (2)
  1. EZETROL [Suspect]
     Indication: HYPERLIPIDAEMIA
     Dosage: UNK
     Route: 048
     Dates: end: 2013
  2. LIPIDIL [Suspect]
     Indication: HYPERLIPIDAEMIA
     Dosage: UNK
     Dates: end: 2013

REACTIONS (4)
  - Renal failure acute [Recovered/Resolved]
  - Liver function test abnormal [Recovered/Resolved]
  - Malaise [Recovered/Resolved]
  - Fatigue [Recovered/Resolved]
